FAERS Safety Report 7781767-1 (Version None)
Quarter: 2011Q3

REPORT INFORMATION
  Report Type: 
  Country: None (occurrence: None)
  Receive Date: 20110927
  Receipt Date: 20110920
  Transmission Date: 20111222
  Serious: Yes (Hospitalization)
  Sender: FDA-Public Use
  Company Number: US-GLAXOSMITHKLINE-A0943366A

PATIENT
  Age: 48 Year
  Sex: Female

DRUGS (13)
  1. SPIRIVA [Concomitant]
  2. VENTOLIN HFA [Concomitant]
  3. FOLIC ACID [Concomitant]
  4. VITAMIN D [Concomitant]
  5. OMEPRAZOLE [Concomitant]
  6. ADVAIR DISKUS 100/50 [Suspect]
     Indication: CHRONIC OBSTRUCTIVE PULMONARY DISEASE
     Dosage: 1MG TWICE PER DAY
     Route: 055
     Dates: start: 20110101, end: 20110601
  7. LYRICA [Concomitant]
  8. PERCOCET [Concomitant]
  9. SPIRIVA [Suspect]
     Indication: CHRONIC OBSTRUCTIVE PULMONARY DISEASE
     Route: 055
  10. ALBUTEROL [Concomitant]
  11. TRAMADOL HCL [Concomitant]
  12. AMITRIPTYLINE HCL [Concomitant]
  13. CALCIUM CARBONATE [Concomitant]

REACTIONS (5)
  - MICTURITION DISORDER [None]
  - CHEST DISCOMFORT [None]
  - DRUG INTOLERANCE [None]
  - CHEST PAIN [None]
  - PNEUMONIA [None]
